FAERS Safety Report 24599634 (Version 2)
Quarter: 2024Q4

REPORT INFORMATION
  Report Type: Spontaneous
  Country: US (occurrence: US)
  Receive Date: 20241110
  Receipt Date: 20241120
  Transmission Date: 20250114
  Serious: No
  Sender: SANOFI AVENTIS
  Company Number: US-SA-2024SA313993

PATIENT
  Age: 22 Year
  Sex: Female

DRUGS (2)
  1. DUPILUMAB [Suspect]
     Active Substance: DUPILUMAB
     Indication: Eczema
     Dosage: 300 MG, QOW
     Route: 058
     Dates: start: 202403
  2. DUPILUMAB [Suspect]
     Active Substance: DUPILUMAB
     Indication: Dermatitis atopic

REACTIONS (5)
  - Dermatitis atopic [Unknown]
  - Eczema [Unknown]
  - Skin irritation [Recovering/Resolving]
  - Pruritus [Recovering/Resolving]
  - Dry skin [Recovering/Resolving]

NARRATIVE: CASE EVENT DATE: 20241001
